FAERS Safety Report 10177278 (Version 2)
Quarter: 2014Q2

REPORT INFORMATION
  Report Type: Spontaneous
  Country: GB (occurrence: GB)
  Receive Date: 20140516
  Receipt Date: 20140605
  Transmission Date: 20141212
  Serious: Yes (Congenital Anomaly)
  Sender: FDA-Public Use
  Company Number: GB-LUNDBECK-DKLU1100049

PATIENT
  Sex: Female
  Weight: 3 kg

DRUGS (4)
  1. CLOBAZAM [Suspect]
     Indication: MATERNAL EXPOSURE TIMING UNSPECIFIED
     Route: 064
  2. CARBAMAZEPINE [Suspect]
     Indication: MATERNAL EXPOSURE TIMING UNSPECIFIED
     Route: 064
  3. LEVETIRACETAM [Suspect]
     Indication: MATERNAL EXPOSURE TIMING UNSPECIFIED
     Route: 064
  4. TOPIRAMATE [Suspect]
     Indication: MATERNAL EXPOSURE TIMING UNSPECIFIED
     Route: 064

REACTIONS (2)
  - Developmental hip dysplasia [Unknown]
  - Foetal exposure during pregnancy [Unknown]
